FAERS Safety Report 7717998-6 (Version None)
Quarter: 2011Q3

REPORT INFORMATION
  Report Type: 
  Country: None (occurrence: None)
  Receive Date: 20110830
  Receipt Date: 20110726
  Transmission Date: 20111222
  Serious: No
  Sender: FDA-Public Use
  Company Number: US-AMGEN-USASP2011033533

PATIENT
  Age: 50 Year
  Sex: Male
  Weight: 125 kg

DRUGS (2)
  1. NPLATE [Suspect]
     Indication: IDIOPATHIC THROMBOCYTOPENIC PURPURA
     Dosage: 120 A?G, UNK
     Dates: start: 20110208
  2. NPLATE [Suspect]
     Dosage: 240 A?G, UNK
     Dates: end: 20110510

REACTIONS (4)
  - FATIGUE [None]
  - HEADACHE [None]
  - BACK PAIN [None]
  - CONSTIPATION [None]
